FAERS Safety Report 5189879-6 (Version None)
Quarter: 2006Q4

REPORT INFORMATION
  Report Type: 
  Country: None (occurrence: None)
  Receive Date: 20061215
  Receipt Date: 20061204
  Transmission Date: 20070319
  Serious: Yes (Other)
  Sender: FDA-Public Use
  Company Number: 2006150865

PATIENT
  Age: 22 Year
  Sex: Female
  Weight: 49 kg

DRUGS (9)
  1. DEPO-PROVERA [Suspect]
     Indication: CONTRACEPTION
     Dosage: 150 MG (150 MG, 1ST INJECTION), INTRAMUSCULAR; SEE IMAGE
     Route: 030
     Dates: start: 20000101, end: 20000101
  2. DEPO-PROVERA [Suspect]
     Indication: DYSMENORRHOEA
     Dosage: 150 MG (150 MG, 1ST INJECTION), INTRAMUSCULAR; SEE IMAGE
     Route: 030
     Dates: start: 20000101, end: 20000101
  3. DEPO-PROVERA [Suspect]
     Indication: MENORRHAGIA
     Dosage: 150 MG (150 MG, 1ST INJECTION), INTRAMUSCULAR; SEE IMAGE
     Route: 030
     Dates: start: 20000101, end: 20000101
  4. DEPO-PROVERA [Suspect]
     Indication: CONTRACEPTION
     Dosage: 150 MG (150 MG, 1ST INJECTION), INTRAMUSCULAR; SEE IMAGE
     Route: 030
     Dates: start: 20010126, end: 20010126
  5. DEPO-PROVERA [Suspect]
     Indication: DYSMENORRHOEA
     Dosage: 150 MG (150 MG, 1ST INJECTION), INTRAMUSCULAR; SEE IMAGE
     Route: 030
     Dates: start: 20010126, end: 20010126
  6. DEPO-PROVERA [Suspect]
     Indication: MENORRHAGIA
     Dosage: 150 MG (150 MG, 1ST INJECTION), INTRAMUSCULAR; SEE IMAGE
     Route: 030
     Dates: start: 20010126, end: 20010126
  7. DEPO-PROVERA [Suspect]
     Indication: CONTRACEPTION
     Dosage: 150 MG (150 MG, 1ST INJECTION), INTRAMUSCULAR; SEE IMAGE
     Route: 030
     Dates: start: 20010518, end: 20010518
  8. DEPO-PROVERA [Suspect]
     Indication: DYSMENORRHOEA
     Dosage: 150 MG (150 MG, 1ST INJECTION), INTRAMUSCULAR; SEE IMAGE
     Route: 030
     Dates: start: 20010518, end: 20010518
  9. DEPO-PROVERA [Suspect]
     Indication: MENORRHAGIA
     Dosage: 150 MG (150 MG, 1ST INJECTION), INTRAMUSCULAR; SEE IMAGE
     Route: 030
     Dates: start: 20010518, end: 20010518

REACTIONS (4)
  - HAEMORRHAGE [None]
  - PRURITUS [None]
  - SCRATCH [None]
  - WEIGHT INCREASED [None]
